FAERS Safety Report 5927571-8 (Version None)
Quarter: 2008Q4

REPORT INFORMATION
  Report Type: 
  Country: None (occurrence: None)
  Receive Date: 20081020
  Receipt Date: 20081010
  Transmission Date: 20090506
  Serious: Yes (Hospitalization, Other)
  Sender: FDA-Public Use
  Company Number: 2008SP020718

PATIENT
  Age: 55 Year
  Sex: Male

DRUGS (2)
  1. PEG-INTRON [Suspect]
     Indication: HEPATITIS C
     Dosage: SC
     Route: 058
     Dates: start: 20080620, end: 20080902
  2. REBETOL [Suspect]
     Indication: HEPATITIS C
     Dosage: PO
     Route: 048
     Dates: start: 20080620, end: 20080902

REACTIONS (5)
  - DECREASED APPETITE [None]
  - HAEMATURIA [None]
  - PENILE HAEMORRHAGE [None]
  - RECTAL HAEMORRHAGE [None]
  - THROMBOSIS [None]
